FAERS Safety Report 16844718 (Version 2)
Quarter: 2019Q3

REPORT INFORMATION
  Report Type: Spontaneous
  Country: RU (occurrence: RU)
  Receive Date: 20190924
  Receipt Date: 20190928
  Transmission Date: 20191005
  Serious: Yes (Life-Threatening, Hospitalization, Disabling)
  Sender: FDA-Public Use
  Company Number: PHHY2019RU217851

PATIENT
  Age: 46 Year
  Sex: Male

DRUGS (1)
  1. VOLTAREN [Suspect]
     Active Substance: DICLOFENAC SODIUM
     Indication: ARTHRALGIA
     Dosage: 150 ML, QD
     Route: 065
     Dates: start: 20180820, end: 20180821

REACTIONS (13)
  - Sepsis [Unknown]
  - Injection site cellulitis [Unknown]
  - Pain in extremity [Unknown]
  - Contusion [Unknown]
  - Injection site induration [Unknown]
  - Arthritis [Unknown]
  - Suspected counterfeit product [Unknown]
  - Anaemia [Unknown]
  - Cellulitis [Unknown]
  - Peripheral swelling [Unknown]
  - Erythema [Unknown]
  - Necrosis [Unknown]
  - Body temperature increased [Unknown]

NARRATIVE: CASE EVENT DATE: 20180821
